FAERS Safety Report 6911487-4 (Version None)
Quarter: 2010Q3

REPORT INFORMATION
  Report Type: 
  Country: None (occurrence: None)
  Receive Date: 20100806
  Receipt Date: 20100727
  Transmission Date: 20110219
  Serious: Yes (Hospitalization, Other)
  Sender: FDA-Public Use
  Company Number: US-ELI_LILLY_AND_COMPANY-US201002003366

PATIENT
  Sex: Male
  Weight: 95.238 kg

DRUGS (2)
  1. BYETTA [Suspect]
     Dosage: UNK, UNK
     Dates: start: 20050701, end: 20080701
  2. GLUCOPHAGE [Concomitant]

REACTIONS (2)
  - PANCREATIC CARCINOMA METASTATIC [None]
  - SPLENECTOMY [None]
